FAERS Safety Report 6819350-4 (Version None)
Quarter: 2010Q3

REPORT INFORMATION
  Report Type: 
  Country: None (occurrence: None)
  Receive Date: 20100707
  Receipt Date: 20100628
  Transmission Date: 20110219
  Serious: Yes (Other)
  Sender: FDA-Public Use
  Company Number: CO-WYE-H15745310

PATIENT
  Age: 62 Year
  Sex: Male

DRUGS (5)
  1. TYGACIL [Suspect]
     Indication: MULTIPLE-DRUG RESISTANCE
     Dosage: 50 MG/VIAL-POWDER (FREQUENCY UNKNOWN)
     Route: 042
     Dates: start: 20100215, end: 20100220
  2. TYGACIL [Suspect]
     Indication: PERITONITIS
  3. PLASIL [Concomitant]
     Indication: MALAISE
     Dosage: UNKNOWN
  4. OMEPRAZOLE [Concomitant]
     Indication: GASTRITIS
     Dosage: UNKNOWN
  5. FRAGMIN [Concomitant]
     Indication: COAGULOPATHY
     Dosage: 5000 UI/DAILY

REACTIONS (2)
  - COAGULATION TIME PROLONGED [None]
  - HAEMORRHAGE [None]
